FAERS Safety Report 4447295-6 (Version None)
Quarter: 2004Q3

REPORT INFORMATION
  Report Type: 
  Country: None (occurrence: None)
  Receive Date: 20040813
  Receipt Date: 20040715
  Transmission Date: 20050211
  Serious: No
  Sender: FDA-Public Use
  Company Number: S04-USA-04107-01

PATIENT
  Sex: Female

DRUGS (3)
  1. NAMENDA [Suspect]
     Indication: MEMORY IMPAIRMENT
     Dates: start: 20040101, end: 20040101
  2. LIPITOR [Concomitant]
  3. FOSAMAX [Concomitant]

REACTIONS (2)
  - BALANCE DISORDER [None]
  - BLOOD PRESSURE INCREASED [None]
